FAERS Safety Report 24783131 (Version 9)
Quarter: 2025Q2

REPORT INFORMATION
  Report Type: Report from Study
  Country: RU (occurrence: RU)
  Receive Date: 20241227
  Receipt Date: 20250401
  Transmission Date: 20250716
  Serious: Yes (Other)
  Sender: NOVARTIS
  Company Number: RU-002147023-NVSC2024RU244498

PATIENT
  Age: 0 Year
  Sex: Male
  Weight: 5 kg

DRUGS (3)
  1. ZOLGENSMA [Suspect]
     Active Substance: ONASEMNOGENE ABEPARVOVEC-XIOI
     Indication: Spinal muscular atrophy
     Route: 042
     Dates: start: 20241115, end: 20241115
  2. PREDNISOLONE [Concomitant]
     Active Substance: PREDNISOLONE
     Indication: Product used for unknown indication
     Dosage: 2.25 MG, QD
     Route: 065
     Dates: start: 20241114
  3. OMEPRAZOLE [Concomitant]
     Active Substance: OMEPRAZOLE
     Indication: Product used for unknown indication
     Route: 065
     Dates: start: 20241114

REACTIONS (21)
  - Blood test abnormal [Recovering/Resolving]
  - Diarrhoea [Not Recovered/Not Resolved]
  - Faeces discoloured [Not Recovered/Not Resolved]
  - Haemoglobin abnormal [Unknown]
  - Red blood cell count abnormal [Unknown]
  - Haematocrit abnormal [Unknown]
  - Mean cell volume abnormal [Unknown]
  - Mean cell haemoglobin concentration abnormal [Unknown]
  - Red cell distribution width abnormal [Unknown]
  - Platelet count abnormal [Unknown]
  - Mean platelet volume abnormal [Unknown]
  - Platelet distribution width abnormal [Unknown]
  - Plateletcrit abnormal [Unknown]
  - White blood cell count abnormal [Unknown]
  - Amylase decreased [Unknown]
  - Blood urea decreased [Unknown]
  - Blood potassium increased [Unknown]
  - White blood cell count decreased [Unknown]
  - Haematocrit decreased [Unknown]
  - Prothrombin time prolonged [Unknown]
  - Aspartate aminotransferase increased [Unknown]

NARRATIVE: CASE EVENT DATE: 20241116
